FAERS Safety Report 17418298 (Version 1)
Quarter: 2020Q1

REPORT INFORMATION
  Report Type: Spontaneous
  Country: US (occurrence: US)
  Receive Date: 20200214
  Receipt Date: 20200214
  Transmission Date: 20200409
  Serious: No
  Sender: FDA-Public Use
  Company Number: US-UNITED THERAPEUTICS-UNT-2018-012841

PATIENT
  Sex: Female

DRUGS (1)
  1. REMODULIN [Suspect]
     Active Substance: TREPROSTINIL
     Indication: PULMONARY ARTERIAL HYPERTENSION
     Dosage: UNK UNK, CONTINUING
     Route: 058
     Dates: start: 20130101

REACTIONS (7)
  - Influenza like illness [Unknown]
  - Pain in extremity [Unknown]
  - Infusion site pain [Unknown]
  - Diarrhoea [Unknown]
  - Pain in jaw [Unknown]
  - Taste disorder [Unknown]
  - Parosmia [Unknown]
